APPROVED DRUG PRODUCT: CEFAZOLIN SODIUM
Active Ingredient: CEFAZOLIN SODIUM
Strength: EQ 1GM BASE/VIAL
Dosage Form/Route: INJECTABLE;INJECTION
Application: A064033 | Product #001
Applicant: GLAXOSMITHKLINE
Approved: Oct 31, 1993 | RLD: No | RS: No | Type: DISCN